FAERS Safety Report 16523784 (Version 1)
Quarter: 2019Q3

REPORT INFORMATION
  Report Type: Spontaneous
  Country: PL (occurrence: PL)
  Receive Date: 20190703
  Receipt Date: 20190703
  Transmission Date: 20191004
  Serious: Yes (Death, Life-Threatening, Hospitalization, Other)
  Sender: FDA-Public Use
  Company Number: PL-UNITED THERAPEUTICS-UNT-2019-011284

PATIENT

DRUGS (6)
  1. REMODULIN [Suspect]
     Active Substance: TREPROSTINIL
     Indication: HEART DISEASE CONGENITAL
  2. SILDENAFIL. [Concomitant]
     Active Substance: SILDENAFIL
     Indication: PULMONARY ARTERIAL HYPERTENSION
     Dosage: 20 MG, TID (3X20 MG)
     Route: 048
  3. REMODULIN [Suspect]
     Active Substance: TREPROSTINIL
     Indication: PULMONARY ARTERIAL HYPERTENSION
     Dosage: UNK, CONTINUING
     Route: 058
     Dates: start: 20190625, end: 20190625
  4. BOSENTAN. [Concomitant]
     Active Substance: BOSENTAN
     Indication: HEART DISEASE CONGENITAL
  5. SILDENAFIL. [Concomitant]
     Active Substance: SILDENAFIL
     Indication: HEART DISEASE CONGENITAL
  6. BOSENTAN. [Concomitant]
     Active Substance: BOSENTAN
     Indication: PULMONARY ARTERIAL HYPERTENSION
     Dosage: 125 MG, BID (2X125 MG)
     Route: 048
     Dates: start: 20181213

REACTIONS (6)
  - Hypovolaemic shock [Fatal]
  - Pulseless electrical activity [Fatal]
  - Off label use [Unknown]
  - Diarrhoea [Recovered/Resolved]
  - Hypotension [Fatal]
  - Complication associated with device [Unknown]

NARRATIVE: CASE EVENT DATE: 20190625
